FAERS Safety Report 11170569 (Version 1)
Quarter: 2015Q2

REPORT INFORMATION
  Report Type: Spontaneous
  Country: CH (occurrence: None)
  Receive Date: 20150604
  Receipt Date: 20150604
  Transmission Date: 20150821
  Serious: Yes (Other)
  Sender: FDA-Public Use
  Company Number: CH2015072161

PATIENT
  Age: 51 Year
  Sex: Male

DRUGS (9)
  1. ELTROXIN (LEVOTHYROXINE SODIUM) [Concomitant]
     Active Substance: LEVOTHYROXINE
  2. TILUR KAPSEIN (ACEMETACIN) [Concomitant]
  3. ASPEGIC [Concomitant]
     Active Substance: ASPIRIN DL-LYSINE
  4. TIVICAY [Suspect]
     Active Substance: DOLUTEGRAVIR SODIUM
     Indication: HIV INFECTION
     Route: 048
     Dates: start: 20141031, end: 20141119
  5. TELZIR (FOSAMPRENAVIR) [Concomitant]
  6. PRADIF (TAMSULOSIN HYDROCHLORIDE) [Concomitant]
  7. 3TC (LAMIVUDINE) [Concomitant]
  8. NORVIR [Concomitant]
     Active Substance: RITONAVIR
  9. VIREAD (TENOFOVIR DISOPROXIL FUMARATE) [Concomitant]

REACTIONS (1)
  - Hepatitis [None]

NARRATIVE: CASE EVENT DATE: 20141119
